FAERS Safety Report 17377429 (Version 2)
Quarter: 2020Q2

REPORT INFORMATION
  Report Type: Spontaneous
  Country: US (occurrence: US)
  Receive Date: 20200206
  Receipt Date: 20200527
  Transmission Date: 20200713
  Serious: No
  Sender: FDA-Public Use
  Company Number: US-HTU-2020US020178

PATIENT
  Sex: Male

DRUGS (2)
  1. VALCHLOR [Suspect]
     Active Substance: MECHLORETHAMINE
     Dosage: UNK, 2/WEEK
     Route: 061
  2. VALCHLOR [Suspect]
     Active Substance: MECHLORETHAMINE
     Indication: SKIN CANCER
     Dosage: UNK, QD
     Route: 061
     Dates: start: 20191029

REACTIONS (2)
  - Application site erythema [Unknown]
  - Intentional product misuse [Unknown]
